FAERS Safety Report 8979689 (Version 2)
Quarter: 2012Q4

REPORT INFORMATION
  Report Type: 
  Country: IT (occurrence: IT)
  Receive Date: 20121221
  Receipt Date: 20121224
  Transmission Date: 20130627
  Serious: Yes (Death)
  Sender: FDA-Public Use
  Company Number: PHHY2012IT116777

PATIENT
  Sex: Female

DRUGS (3)
  1. ZOMETA [Suspect]
     Indication: METASTASES TO BONE
     Dosage: 4 mg, monthly
     Route: 042
     Dates: start: 20051201, end: 20060101
  2. ZOMETA [Suspect]
     Dosage: 4 mg, monthly
     Route: 042
     Dates: start: 20060401, end: 20070301
  3. ZOMETA [Suspect]
     Dosage: 4 mg, monthly
     Route: 042
     Dates: start: 20071101, end: 20080201

REACTIONS (1)
  - Osteonecrosis of jaw [Fatal]
